FAERS Safety Report 22155743 (Version 1)
Quarter: 2023Q1

REPORT INFORMATION
  Report Type: Spontaneous
  Country: RO (occurrence: RO)
  Receive Date: 20230330
  Receipt Date: 20230330
  Transmission Date: 20230417
  Serious: Yes (Other)
  Sender: FDA-Public Use
  Company Number: RO-TEVA-2023-RO-2869894

PATIENT
  Age: 53 Year
  Sex: Female

DRUGS (4)
  1. QUETIAPINE [Suspect]
     Active Substance: QUETIAPINE
     Indication: Product used for unknown indication
     Dosage: DAILY, IN THE EVENING.QUETIAPINA 300 MG, SOMETIMES TAKES QUETIAPINA 50 MG
     Route: 048
     Dates: start: 2013
  2. DIAZEPAM [Concomitant]
     Active Substance: DIAZEPAM
     Indication: Product used for unknown indication
  3. IMOVANE [Concomitant]
     Active Substance: ZOPICLONE
     Indication: Product used for unknown indication
  4. MEDAZEPAM [Concomitant]
     Active Substance: MEDAZEPAM
     Indication: Product used for unknown indication

REACTIONS (3)
  - Eczema weeping [Not Recovered/Not Resolved]
  - Skin disorder [Not Recovered/Not Resolved]
  - Blister rupture [Not Recovered/Not Resolved]

NARRATIVE: CASE EVENT DATE: 20230101
